FAERS Safety Report 18302710 (Version 1)
Quarter: 2020Q3

REPORT INFORMATION
  Report Type: Spontaneous
  Country: US (occurrence: US)
  Receive Date: 20200923
  Receipt Date: 20200923
  Transmission Date: 20201103
  Serious: Yes (Hospitalization, Other)
  Sender: FDA-Public Use
  Company Number: US-ASTELLAS-2020US032628

PATIENT
  Age: 56 Year
  Sex: Male

DRUGS (6)
  1. PADCEV [Suspect]
     Active Substance: ENFORTUMAB VEDOTIN-EJFV
     Dosage: 1 MG/KG, CYCLIC (CYCLE 2 DAY 1)
     Route: 065
     Dates: start: 20200214
  2. PADCEV [Suspect]
     Active Substance: ENFORTUMAB VEDOTIN-EJFV
     Dosage: UNK UNK, CYCLIC (CYCLE 1 DAY 8)
     Route: 065
     Dates: start: 20200122
  3. PADCEV [Suspect]
     Active Substance: ENFORTUMAB VEDOTIN-EJFV
     Indication: TRANSITIONAL CELL CARCINOMA URETHRA
     Dosage: UNK UNK, CYCLIC (CYCLE 1 DAY 1)
     Route: 065
     Dates: start: 20200115
  4. PADCEV [Suspect]
     Active Substance: ENFORTUMAB VEDOTIN-EJFV
     Dosage: UNK UNK, CYCLIC (1CYCLE 6)
     Route: 065
     Dates: start: 20200605
  5. PADCEV [Suspect]
     Active Substance: ENFORTUMAB VEDOTIN-EJFV
     Dosage: UNK UNK, CYCLIC C7
     Route: 065
     Dates: start: 20200710
  6. PADCEV [Suspect]
     Active Substance: ENFORTUMAB VEDOTIN-EJFV
     Dosage: UNK, CYCLIC C 8
     Route: 065
     Dates: start: 20200807

REACTIONS (5)
  - Bacteraemia [Unknown]
  - Acute kidney injury [Unknown]
  - Urine output decreased [Recovering/Resolving]
  - Urinary tract infection [Unknown]
  - Urine output decreased [Recovered/Resolved]

NARRATIVE: CASE EVENT DATE: 202001
